FAERS Safety Report 17408512 (Version 2)
Quarter: 2020Q1

REPORT INFORMATION
  Report Type: Spontaneous
  Country: GB (occurrence: GB)
  Receive Date: 20200212
  Receipt Date: 20200224
  Transmission Date: 20200409
  Serious: Yes (Death, Hospitalization)
  Sender: FDA-Public Use
  Company Number: GB-ASTRAZENECA-2020SE19286

PATIENT
  Age: 61 Year
  Sex: Female

DRUGS (20)
  1. VENLAFAXINE [Concomitant]
     Active Substance: VENLAFAXINE HYDROCHLORIDE
  2. PROCYCLIDINE [Concomitant]
     Active Substance: PROCYCLIDINE
  3. CETIRIZINE [Concomitant]
     Active Substance: CETIRIZINE HYDROCHLORIDE
  4. SODIUM VALPROATE [Concomitant]
     Active Substance: VALPROATE SODIUM
  5. GLICLAZIDE [Concomitant]
     Active Substance: GLICLAZIDE
  6. DAPAGLIFLOZIN. [Suspect]
     Active Substance: DAPAGLIFLOZIN
     Indication: TYPE 2 DIABETES MELLITUS
     Route: 048
     Dates: start: 201807, end: 20200124
  7. LEVOTHYROXINE. [Concomitant]
     Active Substance: LEVOTHYROXINE
  8. FOSTAIR [Concomitant]
     Active Substance: BECLOMETHASONE\FORMOTEROL
  9. TEMAZEPAM. [Concomitant]
     Active Substance: TEMAZEPAM
  10. SALBUTAMOL [Concomitant]
     Active Substance: ALBUTEROL
  11. OMEPRAZOLE. [Concomitant]
     Active Substance: OMEPRAZOLE
  12. SIMVASTATIN. [Concomitant]
     Active Substance: SIMVASTATIN
  13. METFORMIN [Suspect]
     Active Substance: METFORMIN HYDROCHLORIDE
     Indication: TYPE 2 DIABETES MELLITUS
     Route: 048
     Dates: end: 20200124
  14. TRIFLUOPERAZINE [Concomitant]
     Active Substance: TRIFLUOPERAZINE HYDROCHLORIDE
  15. FERROUS FUMARATE [Concomitant]
     Active Substance: FERROUS FUMARATE
  16. QUETIAPINE. [Concomitant]
     Active Substance: QUETIAPINE
  17. PREDNISOLONE. [Concomitant]
     Active Substance: PREDNISOLONE
  18. RAMIPRIL. [Concomitant]
     Active Substance: RAMIPRIL
  19. DOXYCYCLINE. [Concomitant]
     Active Substance: DOXYCYCLINE
  20. ADCAL-D3 [Concomitant]
     Active Substance: CALCIUM CARBONATE\CHOLECALCIFEROL

REACTIONS (10)
  - Multiple organ dysfunction syndrome [Fatal]
  - Coeliac disease [Fatal]
  - Hypotension [Fatal]
  - Hypothermia [Fatal]
  - Diarrhoea [Fatal]
  - Lactic acidosis [Fatal]
  - Chronic obstructive pulmonary disease [Fatal]
  - Diabetes mellitus [Fatal]
  - Schizophrenia [Fatal]
  - Abdominal distension [Fatal]

NARRATIVE: CASE EVENT DATE: 20200124
